FAERS Safety Report 17388355 (Version 32)
Quarter: 2025Q2

REPORT INFORMATION
  Report Type: Report from Study
  Country: US (occurrence: US)
  Receive Date: 20200207
  Receipt Date: 20250509
  Transmission Date: 20250716
  Serious: Yes (Hospitalization, Other)
  Sender: TAKEDA
  Company Number: US-SHIRE-US202004633

PATIENT
  Age: 52 Year
  Sex: Female
  Weight: 48 kg

DRUGS (44)
  1. HUMAN IMMUNOGLOBULIN G [Suspect]
     Active Substance: HUMAN IMMUNOGLOBULIN G
     Indication: Immunodeficiency common variable
     Dosage: 24 GRAM, Q4WEEKS
     Dates: start: 20200207
  2. HUMAN IMMUNOGLOBULIN G [Suspect]
     Active Substance: HUMAN IMMUNOGLOBULIN G
     Dosage: 30 GRAM, Q2WEEKS
  3. KLONOPIN [Suspect]
     Active Substance: CLONAZEPAM
     Indication: Product used for unknown indication
  4. ACETAMINOPHEN [Concomitant]
     Active Substance: ACETAMINOPHEN
  5. EPINEPHRINE [Concomitant]
     Active Substance: EPINEPHRINE
  6. SALONPAS PAIN RELIEF [Concomitant]
     Active Substance: MENTHOL\METHYL SALICYLATE
  7. CLARITIN [Concomitant]
     Active Substance: LORATADINE
  8. SUBOXONE [Concomitant]
     Active Substance: BUPRENORPHINE HYDROCHLORIDE\NALOXONE HYDROCHLORIDE
  9. TOPIRAMATE [Concomitant]
     Active Substance: TOPIRAMATE
  10. VALACYCLOVIR [Concomitant]
     Active Substance: VALACYCLOVIR HYDROCHLORIDE
  11. ADDERALL [Concomitant]
     Active Substance: AMPHETAMINE ASPARTATE\AMPHETAMINE SULFATE\DEXTROAMPHETAMINE SACCHARATE\DEXTROAMPHETAMINE SULFATE
  12. ALBUTEROL SULFATE [Concomitant]
     Active Substance: ALBUTEROL SULFATE
  13. SPIRIVA RESPIMAT [Concomitant]
     Active Substance: TIOTROPIUM BROMIDE
  14. LEVOTHYROXINE SODIUM [Concomitant]
     Active Substance: LEVOTHYROXINE SODIUM
  15. ADVAIR HFA [Concomitant]
     Active Substance: FLUTICASONE PROPIONATE\SALMETEROL XINAFOATE
  16. TRAZODONE HCL [Concomitant]
     Active Substance: TRAZODONE HYDROCHLORIDE
  17. SODIUM CHLORIDE [Concomitant]
     Active Substance: SODIUM CHLORIDE
  18. LINZESS [Concomitant]
     Active Substance: LINACLOTIDE
  19. CYCLOSPORINE [Concomitant]
     Active Substance: CYCLOSPORINE
  20. FLECTOR [Concomitant]
     Active Substance: DICLOFENAC EPOLAMINE
  21. PAXLOVID [Concomitant]
     Active Substance: NIRMATRELVIR\RITONAVIR
  22. FAMOTIDINE [Concomitant]
     Active Substance: FAMOTIDINE
  23. GABAPENTIN [Concomitant]
     Active Substance: GABAPENTIN
  24. CROMOLYN SODIUM [Concomitant]
     Active Substance: CROMOLYN SODIUM
  25. SODIUM CHLORIDE [Concomitant]
     Active Substance: SODIUM CHLORIDE
  26. LIDOCAINE [Concomitant]
     Active Substance: LIDOCAINE
  27. CYCLOBENZAPRINE HYDROCHLORIDE [Concomitant]
     Active Substance: CYCLOBENZAPRINE HYDROCHLORIDE
  28. LAMIVUDINE [Concomitant]
     Active Substance: LAMIVUDINE
  29. PREDNISONE [Concomitant]
     Active Substance: PREDNISONE
  30. HEPARIN [Concomitant]
     Active Substance: HEPARIN SODIUM
  31. PROAIR HFA [Concomitant]
     Active Substance: ALBUTEROL SULFATE
  32. MAGNESIUM [Concomitant]
     Active Substance: MAGNESIUM
  33. VENTOLIN [Concomitant]
     Active Substance: ALBUTEROL SULFATE
  34. VALTREX [Concomitant]
     Active Substance: VALACYCLOVIR HYDROCHLORIDE
  35. VITAMIN C [Concomitant]
     Active Substance: ASCORBIC ACID
  36. TOPAMAX [Concomitant]
     Active Substance: TOPIRAMATE
  37. ALBUTEROL SULFATE [Concomitant]
     Active Substance: ALBUTEROL SULFATE
  38. DIPHENHYDRAMINE HYDROCHLORIDE [Concomitant]
     Active Substance: DIPHENHYDRAMINE HYDROCHLORIDE
  39. DIPHENHYDRAMINE [Concomitant]
     Active Substance: DIPHENHYDRAMINE
  40. CEVIMELINE HYDROCHLORIDE [Concomitant]
     Active Substance: CEVIMELINE HYDROCHLORIDE
  41. FLUVOXAMINE MALEATE [Concomitant]
     Active Substance: FLUVOXAMINE MALEATE
  42. BANOPHEN [Concomitant]
     Active Substance: DIPHENHYDRAMINE HYDROCHLORIDE
  43. CROMOLYN [Concomitant]
     Active Substance: CROMOLYN
  44. CYPROHEPTADINE HYDROCHLORIDE [Concomitant]
     Active Substance: CYPROHEPTADINE HYDROCHLORIDE

REACTIONS (59)
  - Aphonia [Unknown]
  - Abortion spontaneous [Unknown]
  - Faecaloma [Unknown]
  - Pneumonia [Unknown]
  - Emphysema [Unknown]
  - Vocal cord disorder [Unknown]
  - Endotracheal intubation complication [Unknown]
  - Sjogren^s syndrome [Unknown]
  - Syncope [Unknown]
  - Bradycardia [Unknown]
  - Laryngeal pain [Unknown]
  - Cough [Unknown]
  - Abdominal pain upper [Unknown]
  - Infusion related reaction [Unknown]
  - Peripheral swelling [Unknown]
  - Joint swelling [Unknown]
  - Hordeolum [Unknown]
  - Musculoskeletal pain [Unknown]
  - Raynaud^s phenomenon [Recovering/Resolving]
  - Illness [Unknown]
  - Eye irritation [Unknown]
  - Fall [Unknown]
  - Thermal burn [Unknown]
  - Head injury [Unknown]
  - Infusion site scar [Unknown]
  - Mental disorder [Unknown]
  - Skin laceration [Unknown]
  - Stress [Unknown]
  - Poor quality sleep [Unknown]
  - Arthropod bite [Unknown]
  - Scab [Unknown]
  - Postural orthostatic tachycardia syndrome [Unknown]
  - Catheter site pruritus [Unknown]
  - Incision site pain [Unknown]
  - Urinary tract infection [Unknown]
  - Weight increased [Unknown]
  - Limb discomfort [Unknown]
  - Pregnancy [Recovered/Resolved]
  - Musculoskeletal stiffness [Unknown]
  - Limb injury [Unknown]
  - Mass [Unknown]
  - Product dose omission issue [Unknown]
  - Gastrooesophageal reflux disease [Unknown]
  - Constipation [Unknown]
  - Flatulence [Not Recovered/Not Resolved]
  - Sedation [Unknown]
  - Abdominal discomfort [Unknown]
  - Somnolence [Unknown]
  - Pain [Unknown]
  - Contusion [Recovering/Resolving]
  - Anxiety [Unknown]
  - Eye pain [Unknown]
  - Arthralgia [Unknown]
  - Pain in extremity [Unknown]
  - Abdominal pain [Unknown]
  - Fatigue [Unknown]
  - Headache [Unknown]
  - Diarrhoea [Unknown]
  - Nausea [Unknown]

NARRATIVE: CASE EVENT DATE: 20250430
